FAERS Safety Report 24678951 (Version 2)
Quarter: 2024Q4

REPORT INFORMATION
  Report Type: Spontaneous
  Country: GB (occurrence: GB)
  Receive Date: 20241129
  Receipt Date: 20241213
  Transmission Date: 20250115
  Serious: Yes (Hospitalization, Other)
  Sender: TORRENT PHARMA INC.
  Company Number: None

PATIENT
  Age: 73 Year
  Sex: Male

DRUGS (3)
  1. LOSARTAN [Interacting]
     Active Substance: LOSARTAN
     Indication: Hypertension
     Dosage: 100 MG, QD
     Route: 048
  2. AMLODIPINE [Interacting]
     Active Substance: AMLODIPINE BESYLATE
     Indication: Hypertension
     Dosage: 5 MG, QD
     Route: 048
  3. LORATADINE [Suspect]
     Active Substance: LORATADINE
     Indication: Seasonal allergy
     Dosage: BOOTS ONE-A-DAY ALLERGY RELIEF TABLETS 10MG DOSAGE1
     Route: 065

REACTIONS (6)
  - Fall [Recovered/Resolved]
  - Subdural haematoma [Recovered/Resolved]
  - Nightmare [Recovered/Resolved]
  - Somnambulism [Recovered/Resolved]
  - Drug interaction [Unknown]
  - Contusion [Recovered/Resolved]
